FAERS Safety Report 5877843-0 (Version None)
Quarter: 2008Q3

REPORT INFORMATION
  Report Type: 
  Country: None (occurrence: None)
  Receive Date: 20080911
  Receipt Date: 20080829
  Transmission Date: 20090109
  Serious: Yes (Other)
  Sender: FDA-Public Use
  Company Number: ZA-ELI_LILLY_AND_COMPANY-ZA200809000288

PATIENT
  Age: 60 Year
  Sex: Female

DRUGS (3)
  1. CYMBALTA [Suspect]
     Indication: MAJOR DEPRESSION
     Dosage: 60 MG, DAILY (1/D)
     Route: 048
     Dates: start: 20070101
  2. LYRICA [Concomitant]
     Dosage: UNK, UNKNOWN
     Route: 048
  3. TEGRETOL [Concomitant]
     Dosage: UNK, UNKNOWN
     Route: 048
     Dates: end: 20080101

REACTIONS (2)
  - ALOPECIA [None]
  - RASH [None]
